FAERS Safety Report 22319169 (Version 2)
Quarter: 2023Q2

REPORT INFORMATION
  Report Type: Spontaneous
  Country: BG (occurrence: BG)
  Receive Date: 20230515
  Receipt Date: 20230530
  Transmission Date: 20230721
  Serious: Yes (Other)
  Sender: FDA-Public Use
  Company Number: BG-BAYER-2023A062339

PATIENT
  Age: 47 Year
  Sex: Female

DRUGS (1)
  1. MIRENA [Suspect]
     Active Substance: LEVONORGESTREL
     Dosage: 20?G/DAY
     Route: 015

REACTIONS (5)
  - Syncope [None]
  - Procedural pain [None]
  - Discomfort [None]
  - Back pain [None]
  - Adnexa uteri pain [None]

NARRATIVE: CASE EVENT DATE: 20230517
